FAERS Safety Report 7370434-4 (Version None)
Quarter: 2011Q1

REPORT INFORMATION
  Report Type: 
  Country: None (occurrence: None)
  Receive Date: 20110323
  Receipt Date: 20110316
  Transmission Date: 20110831
  Serious: Yes (Hospitalization)
  Sender: FDA-Public Use
  Company Number: US-BAYER-2011-024508

PATIENT
  Sex: Male
  Weight: 101.59 kg

DRUGS (2)
  1. ALEVE (CAPLET) [Suspect]
     Indication: JOINT SWELLING
     Dosage: UNK UNK, PRN, BOTTLE COUNT 200CT
     Dates: start: 20110305
  2. ALEVE (CAPLET) [Suspect]
     Indication: ARTHRALGIA

REACTIONS (3)
  - HAEMATEMESIS [None]
  - DECREASED APPETITE [None]
  - NAUSEA [None]
